FAERS Safety Report 13581310 (Version 1)
Quarter: 2017Q2

REPORT INFORMATION
  Report Type: Spontaneous
  Country: US (occurrence: US)
  Receive Date: 20170525
  Receipt Date: 20170525
  Transmission Date: 20170830
  Serious: Yes (Other)
  Sender: FDA-Public Use
  Company Number: None

PATIENT
  Age: 62 Year
  Sex: Female
  Weight: 91.8 kg

DRUGS (7)
  1. TEMAZEPAM. [Concomitant]
     Active Substance: TEMAZEPAM
  2. LIPITOR [Concomitant]
     Active Substance: ATORVASTATIN CALCIUM
  3. LISINOPRIL. [Concomitant]
     Active Substance: LISINOPRIL
  4. BABY ASPIRIN [Concomitant]
     Active Substance: ASPIRIN
  5. CIPROFLOXACIN FOR CIPRO [Suspect]
     Active Substance: CIPROFLOXACIN HYDROCHLORIDE
     Indication: DIVERTICULITIS
     Dosage: ?          QUANTITY:1 TABLET(S);?
     Route: 048
  6. METFORMIN [Concomitant]
     Active Substance: METFORMIN HYDROCHLORIDE
  7. LATANOPROST EYE DROPS [Concomitant]
     Active Substance: LATANOPROST

REACTIONS (4)
  - Gait disturbance [None]
  - Peripheral swelling [None]
  - Muscle rupture [None]
  - Muscle spasms [None]

NARRATIVE: CASE EVENT DATE: 20170521
